FAERS Safety Report 11717459 (Version 1)
Quarter: 2015Q4

REPORT INFORMATION
  Report Type: Spontaneous
  Country: US (occurrence: US)
  Receive Date: 20151110
  Receipt Date: 20151110
  Transmission Date: 20160304
  Serious: Yes (Hospitalization, Other)
  Sender: FDA-Public Use
  Company Number: US-ALKEM-001317

PATIENT
  Age: 42 Year
  Sex: Male

DRUGS (8)
  1. CLOZAPINE. [Suspect]
     Active Substance: CLOZAPINE
     Indication: SCHIZOAFFECTIVE DISORDER
     Dosage: ALSO RECEIVED 12.5 MG
  2. LORAZEPAM. [Concomitant]
     Active Substance: LORAZEPAM
     Indication: SCHIZOAFFECTIVE DISORDER
     Dosage: ALSO RECEIVED INTRAMUSCULAR LORAZEPAM 5 MG
     Route: 048
  3. CLONAZEPAM. [Concomitant]
     Active Substance: CLONAZEPAM
     Indication: SCHIZOAFFECTIVE DISORDER
     Dosage: ALSO RECEIVED CLONAZEPAM 0.5 MG TWICE DAILY FOR NEXT 4 DAYS
  4. CHLORPROMAZINE. [Concomitant]
     Active Substance: CHLORPROMAZINE
     Indication: SCHIZOAFFECTIVE DISORDER
     Route: 030
  5. QUETIAPINE/QUETIAPINE FUMARATE [Suspect]
     Active Substance: QUETIAPINE FUMARATE
     Indication: SCHIZOAFFECTIVE DISORDER
     Dosage: 100 MG DAILY FOR NEXT 3 DAYS ?ALSO RECEIVED 50 MG DAILY
  6. HALOPERIDOL. [Concomitant]
     Active Substance: HALOPERIDOL
     Indication: SCHIZOAFFECTIVE DISORDER
     Dosage: ALSO RECEIVED 15 MG INTRAMUSCULAR HALOPERIDOL
     Route: 048
  7. OLANZAPINE. [Suspect]
     Active Substance: OLANZAPINE
     Indication: SCHIZOAFFECTIVE DISORDER
     Dosage: 20 MG OF OLANZAPINE DAILY AT BEDTIME
  8. VALPROIC ACID. [Concomitant]
     Active Substance: VALPROIC ACID
     Indication: SCHIZOAFFECTIVE DISORDER
     Dosage: 500 MG AT BEDTIME

REACTIONS (4)
  - Neuroleptic malignant syndrome [Recovered/Resolved]
  - Anxiety [Unknown]
  - Liver function test abnormal [Recovered/Resolved]
  - Blood creatine phosphokinase increased [Recovered/Resolved]

NARRATIVE: CASE EVENT DATE: 20130916
